FAERS Safety Report 9535296 (Version 1)
Quarter: 2013Q3

REPORT INFORMATION
  Report Type: Report from Study
  Country: US (occurrence: US)
  Receive Date: 20130918
  Receipt Date: 20130918
  Transmission Date: 20140515
  Serious: Yes (Hospitalization)
  Sender: FDA-Public Use
  Company Number: US-ABBVIE-13P-163-1147383-00

PATIENT
  Age: 58 Year
  Sex: Female
  Weight: 63.56 kg

DRUGS (24)
  1. HUMIRA [Suspect]
     Indication: PSORIATIC ARTHROPATHY
     Dates: start: 2011, end: 2012
  2. HUMIRA [Suspect]
     Route: 058
     Dates: start: 201303, end: 201305
  3. HUMIRA [Suspect]
     Dates: start: 20130802
  4. ABILIFY [Concomitant]
     Indication: DEPRESSION
  5. LAMICTAL [Concomitant]
     Indication: BIPOLAR DISORDER
  6. RISPERIDONE [Concomitant]
     Indication: BIPOLAR DISORDER
  7. RESTASIS [Concomitant]
     Indication: EYE DISORDER
  8. VERAPAMIL [Concomitant]
     Indication: MIGRAINE PROPHYLAXIS
  9. FROVA [Concomitant]
     Indication: MIGRAINE
  10. OXYCODONE [Concomitant]
     Indication: PAIN
  11. OXYCONTIN [Concomitant]
     Indication: PAIN
  12. REQUIP [Concomitant]
     Indication: RESTLESS LEGS SYNDROME
  13. VITAMIN C [Concomitant]
     Indication: VITAMIN SUPPLEMENTATION
  14. PRENATAL VITAMINS [Concomitant]
     Indication: VITAMIN SUPPLEMENTATION
  15. VITAMIN D3 [Concomitant]
     Indication: VITAMIN SUPPLEMENTATION
  16. VITAMIN B [Concomitant]
     Indication: VITAMIN SUPPLEMENTATION
  17. PREVACID [Concomitant]
     Indication: HIATUS HERNIA
  18. SENOKOT [Concomitant]
     Indication: GASTROINTESTINAL MOTILITY DISORDER
  19. PREDNISONE [Concomitant]
     Indication: ARTHRITIS
  20. VOLTAREN [Concomitant]
     Indication: ARTHRITIS
  21. FLECTOR [Concomitant]
     Indication: PAIN
  22. LEXAPRO [Concomitant]
     Indication: DEPRESSION
  23. DIAZEPAM [Concomitant]
     Indication: MUSCLE SPASMS
  24. ZANAFLEX [Concomitant]
     Indication: MUSCLE SPASMS

REACTIONS (3)
  - Small intestinal obstruction [Recovering/Resolving]
  - Abdominal pain [Recovering/Resolving]
  - Infection [Recovered/Resolved]
